FAERS Safety Report 6077782-9 (Version None)
Quarter: 2009Q1

REPORT INFORMATION
  Report Type: 
  Country: None (occurrence: None)
  Receive Date: 20090213
  Receipt Date: 20090204
  Transmission Date: 20090719
  Serious: Yes (Other)
  Sender: FDA-Public Use
  Company Number: US-PFIZER INC-2009168928

PATIENT
  Sex: Male
  Weight: 84.807 kg

DRUGS (3)
  1. XANAX [Suspect]
     Indication: ANXIETY
     Dosage: 0.25 MG, 1X/DAY
  2. XANAX [Suspect]
     Indication: STRESS
  3. SEROQUEL [Concomitant]
     Dosage: UNK

REACTIONS (7)
  - ANXIETY DISORDER [None]
  - BLINDNESS [None]
  - HEADACHE [None]
  - INTERVERTEBRAL DISC PROTRUSION [None]
  - MUSCULAR WEAKNESS [None]
  - NECK PAIN [None]
  - VISUAL IMPAIRMENT [None]
